FAERS Safety Report 8439214-2 (Version None)
Quarter: 2012Q2

REPORT INFORMATION
  Report Type: 
  Country: None (occurrence: None)
  Receive Date: 20120615
  Receipt Date: 20120608
  Transmission Date: 20120825
  Serious: Yes (Hospitalization)
  Sender: FDA-Public Use
  Company Number: PHBS2006DK09998

PATIENT
  Sex: Female

DRUGS (9)
  1. IMATINIB MESYLATE [Interacting]
     Route: 048
     Dates: start: 20060622, end: 20060630
  2. IMATINIB MESYLATE [Interacting]
     Route: 048
     Dates: start: 20060918
  3. NEXIUM [Concomitant]
     Route: 065
  4. RAMIPRIL [Concomitant]
     Dosage: 5 MG, QD
     Route: 048
  5. SIMVASTATIN [Interacting]
     Indication: HYPERCHOLESTEROLAEMIA
     Dosage: 40 MG/DAY
     Route: 048
     Dates: end: 20060628
  6. ZOLPIDEM TARTRATE [Concomitant]
     Dosage: 10 MG, PRN
     Route: 048
  7. IMATINIB MESYLATE [Suspect]
     Indication: CHRONIC MYELOID LEUKAEMIA
     Dosage: 200 MG/DAY
     Route: 048
     Dates: start: 20060522, end: 20060611
  8. CENTYL [Concomitant]
     Dosage: 5 MG, QD
     Route: 048
  9. HJERTEMAGNYL ^DAK^ [Concomitant]
     Dosage: 75 MG, QD
     Route: 048

REACTIONS (11)
  - MUSCULAR WEAKNESS [None]
  - GAIT DISTURBANCE [None]
  - BLOOD CREATINE PHOSPHOKINASE INCREASED [None]
  - CARDIOTOXICITY [None]
  - MYOSITIS [None]
  - MYOGLOBIN BLOOD INCREASED [None]
  - MUSCLE ENZYME INCREASED [None]
  - DRUG INTERACTION [None]
  - HEPATIC ENZYME ABNORMAL [None]
  - RHABDOMYOLYSIS [None]
  - ALANINE AMINOTRANSFERASE INCREASED [None]
